FAERS Safety Report 8430687-8 (Version None)
Quarter: 2012Q2

REPORT INFORMATION
  Report Type: 
  Country: None (occurrence: None)
  Receive Date: 20120612
  Receipt Date: 20120601
  Transmission Date: 20120825
  Serious: Yes (Death, Life-Threatening, Hospitalization, Disabling, Other)
  Sender: FDA-Public Use
  Company Number: JP-JNJFOC-20091207203

PATIENT
  Sex: Male
  Weight: 44 kg

DRUGS (8)
  1. ZERIT [Concomitant]
     Indication: HIV INFECTION
     Route: 048
     Dates: start: 20060823, end: 20090304
  2. PREZISTA [Suspect]
     Indication: HIV INFECTION
     Route: 048
     Dates: start: 20070924, end: 20100104
  3. NORVIR [Concomitant]
     Indication: HIV INFECTION
     Route: 048
     Dates: start: 20070924, end: 20100104
  4. ISENTRESS [Concomitant]
     Indication: HIV INFECTION
     Route: 048
     Dates: start: 20080401, end: 20100104
  5. EPIVIR [Concomitant]
     Indication: HIV INFECTION
     Route: 048
     Dates: start: 20060823, end: 20100104
  6. VICCLOX [Concomitant]
     Indication: HIV INFECTION
     Route: 048
     Dates: start: 20070924
  7. MS CONTIN [Concomitant]
     Indication: NEURALGIA
     Route: 048
     Dates: start: 20090619, end: 20100104
  8. NOVACT-M [Concomitant]
     Indication: FACTOR IX DEFICIENCY
     Dosage: 0 - 4 PER DAY
     Route: 050
     Dates: start: 20070401, end: 20100104

REACTIONS (5)
  - HYPERTENSION [None]
  - OESOPHAGEAL ULCER [None]
  - BRAIN STEM HAEMORRHAGE [None]
  - PNEUMONIA [None]
  - OESOPHAGEAL OBSTRUCTION [None]
